FAERS Safety Report 9481960 (Version 1)
Quarter: 2013Q3

REPORT INFORMATION
  Report Type: Spontaneous
  Country: US (occurrence: US)
  Receive Date: 20130828
  Receipt Date: 20130828
  Transmission Date: 20140515
  Serious: No
  Sender: FDA-Public Use
  Company Number: US-PFIZER INC-2013247288

PATIENT
  Age: 60 Year
  Sex: Female
  Weight: 66.67 kg

DRUGS (1)
  1. LYRICA [Suspect]
     Indication: FIBROMYALGIA
     Dosage: 100 MG, 2X/DAY
     Route: 048
     Dates: start: 201303

REACTIONS (7)
  - Depression [Unknown]
  - Euphoric mood [Unknown]
  - Feeling abnormal [Unknown]
  - Gait disturbance [Unknown]
  - Dizziness [Unknown]
  - Memory impairment [Unknown]
  - Fluid retention [Unknown]
